FAERS Safety Report 17460914 (Version 1)
Quarter: 2020Q1

REPORT INFORMATION
  Report Type: Spontaneous
  Country: US (occurrence: US)
  Receive Date: 20200226
  Receipt Date: 20200226
  Transmission Date: 20200409
  Serious: Yes (Hospitalization, Other)
  Sender: FDA-Public Use
  Company Number: US-ELI_LILLY_AND_COMPANY-US202002007232

PATIENT
  Age: 84 Year
  Sex: Female

DRUGS (1)
  1. VERZENIO [Suspect]
     Active Substance: ABEMACICLIB
     Indication: BREAST CANCER
     Dosage: 150 MG, BID
     Route: 048

REACTIONS (7)
  - Dehydration [Unknown]
  - Syncope [Unknown]
  - Dizziness [Unknown]
  - Confusional state [Unknown]
  - Renal injury [Unknown]
  - Headache [Unknown]
  - Fatigue [Unknown]
